FAERS Safety Report 8785548 (Version 2)
Quarter: 2012Q4

REPORT INFORMATION
  Report Type: Spontaneous
  Country: US (occurrence: None)
  Receive Date: 20120830
  Receipt Date: 20121015
  Transmission Date: 20130627
  Serious: Yes (Other)
  Sender: FDA-Public Use
  Company Number: DSA_59122_2012

PATIENT
  Sex: Male

DRUGS (3)
  1. XENAZINE 12.5 MG (NOT SPECIFIED) [Suspect]
     Indication: HUNTINGTON^S DISEASE
     Dosage: (25 mg in the morning, 12.5 at noon and 12.5 at night)
     Route: 048
     Dates: start: 20120214
  2. XENAZINE 12.5 MG (NOT SPECIFIED) [Suspect]
     Indication: HUNTINGTON^S DISEASE
     Route: 048
     Dates: start: 20120327
  3. ALPRAZOLAM [Concomitant]

REACTIONS (6)
  - Pain in extremity [None]
  - Pneumonia aspiration [None]
  - Feeling abnormal [None]
  - Faecal incontinence [None]
  - Urinary incontinence [None]
  - Dementia [None]
